FAERS Safety Report 18875578 (Version 1)
Quarter: 2021Q1

REPORT INFORMATION
  Report Type: Spontaneous
  Country: FR (occurrence: FR)
  Receive Date: 20210210
  Receipt Date: 20210210
  Transmission Date: 20210420
  Serious: Yes (Life-Threatening, Other)
  Sender: FDA-Public Use
  Company Number: FR-PFIZER INC-2021120682

PATIENT
  Age: 50 Year
  Sex: Female

DRUGS (5)
  1. INDOMETACIN [Suspect]
     Active Substance: INDOMETHACIN
     Dosage: UNK
  2. LANSOPRAZOLE. [Concomitant]
     Active Substance: LANSOPRAZOLE
     Dosage: UNK
  3. SALAZOPYRINE [Suspect]
     Active Substance: SULFASALAZINE
     Dosage: UNK
  4. PARACETAMOL [Concomitant]
     Active Substance: ACETAMINOPHEN
     Dosage: UNK
  5. RACECADOTRIL [Concomitant]
     Active Substance: RACECADOTRIL
     Dosage: UNK

REACTIONS (4)
  - Drug reaction with eosinophilia and systemic symptoms [Unknown]
  - Hepatic failure [Unknown]
  - Human herpesvirus 6 infection reactivation [Unknown]
  - Herpes simplex reactivation [Unknown]
